FAERS Safety Report 5635671-5 (Version None)
Quarter: 2008Q1

REPORT INFORMATION
  Report Type: 
  Country: None (occurrence: None)
  Receive Date: 20080220
  Receipt Date: 20080204
  Transmission Date: 20080703
  Serious: Yes (Hospitalization)
  Sender: FDA-Public Use
  Company Number: 2008JP000652

PATIENT
  Age: 65 Year
  Sex: Male
  Weight: 73.5 kg

DRUGS (2)
  1. VESICARE [Suspect]
     Indication: HYPERTONIC BLADDER
     Dosage: 5 MG, UID/QD, ORAL
     Route: 048
     Dates: start: 20070628, end: 20070726
  2. TAMSULOSIN HCL [Concomitant]

REACTIONS (1)
  - MYOCARDIAL INFARCTION [None]
